FAERS Safety Report 8137373-2 (Version None)
Quarter: 2012Q1

REPORT INFORMATION
  Report Type: 
  Country: None (occurrence: None)
  Receive Date: 20120215
  Receipt Date: 20120201
  Transmission Date: 20120608
  Serious: Yes (Other)
  Sender: FDA-Public Use
  Company Number: US-JNJFOC-20111109558

PATIENT
  Sex: Male
  Weight: 81.65 kg

DRUGS (19)
  1. PROMETHAZINE [Concomitant]
     Route: 065
  2. MULTI-VITAMINS [Concomitant]
     Route: 065
  3. CYMBALTA [Concomitant]
     Route: 065
  4. WARFARIN SODIUM [Concomitant]
     Indication: THROMBOSIS
     Route: 048
     Dates: start: 19950101
  5. CALCIUM AND VIT D [Concomitant]
     Route: 065
  6. PREDNISONE TAB [Concomitant]
     Route: 065
  7. IRON [Concomitant]
     Route: 065
  8. METFORMIN HCL [Concomitant]
     Route: 065
  9. ASPIRIN [Concomitant]
     Route: 065
  10. WARFARIN SODIUM [Concomitant]
     Route: 048
     Dates: start: 19950101
  11. MIRTAZAPINE [Concomitant]
     Route: 065
  12. FLUOXETINE [Concomitant]
     Route: 065
  13. METFORMIN HCL [Concomitant]
     Route: 065
  14. GLYBURIDE [Concomitant]
     Route: 065
  15. TEMAZEPAM [Concomitant]
     Route: 065
  16. REMICADE [Suspect]
     Indication: RHEUMATOID ARTHRITIS
     Route: 042
     Dates: start: 20020101, end: 20111108
  17. ZOFRAN [Concomitant]
     Route: 065
  18. BENADRYL [Concomitant]
     Route: 065
  19. ALLOPURINOL [Concomitant]
     Route: 065

REACTIONS (21)
  - CANDIDIASIS [None]
  - LIVER FUNCTION TEST ABNORMAL [None]
  - SWOLLEN TONGUE [None]
  - WEIGHT DECREASED [None]
  - DECREASED APPETITE [None]
  - TONGUE NEOPLASM [None]
  - ORAL MUCOSAL DISCOLOURATION [None]
  - BACK PAIN [None]
  - DEPRESSION [None]
  - PANCREATIC DISORDER [None]
  - VISION BLURRED [None]
  - ABDOMINAL PAIN UPPER [None]
  - DYSPEPSIA [None]
  - MUSCULAR WEAKNESS [None]
  - RHINORRHOEA [None]
  - CHEST PAIN [None]
  - BLOOD CHOLESTEROL INCREASED [None]
  - NAUSEA [None]
  - TONGUE COATED [None]
  - ARTHRALGIA [None]
  - ABDOMINAL PAIN [None]
